FAERS Safety Report 10517236 (Version 2)
Quarter: 2015Q4

REPORT INFORMATION
  Report Type: Report from Study
  Country: US (occurrence: US)
  Receive Date: 20141014
  Receipt Date: 20151012
  Transmission Date: 20160304
  Serious: Yes (Hospitalization, Other)
  Sender: FDA-Public Use
  Company Number: US-MYLANLABS-2014SP005357

PATIENT

DRUGS (13)
  1. METHOTREXATE [Suspect]
     Active Substance: METHOTREXATE
     Indication: ANAPLASTIC LARGE-CELL LYMPHOMA
     Dosage: 12 MG, CYCLE
     Route: 037
     Dates: start: 20131206
  2. METHOTREXATE [Suspect]
     Active Substance: METHOTREXATE
     Dosage: 3000 MG, CYCLE OVER 3 HOURS ON DAY 1
     Route: 042
     Dates: start: 20131211, end: 20140402
  3. IFOSFAMIDE. [Suspect]
     Active Substance: IFOSFAMIDE
     Indication: ANAPLASTIC LARGE-CELL LYMPHOMA
     Dosage: 800 MG/M2, CYCLE
     Route: 042
     Dates: start: 20131211, end: 20140316
  4. ETOPOSIDE. [Suspect]
     Active Substance: ETOPOSIDE
     Indication: ANAPLASTIC LARGE-CELL LYMPHOMA
     Dosage: 100 MG/M2, CYCLE
     Route: 042
     Dates: start: 20131211, end: 20140316
  5. CRIZOTINIB [Suspect]
     Active Substance: CRIZOTINIB
     Indication: ANAPLASTIC LARGE CELL LYMPHOMA T- AND NULL-CELL TYPES
     Dosage: 165 MG/M2, BID ON DAYS 1-21
     Route: 048
     Dates: start: 20131211
  6. CYTARABINE. [Suspect]
     Active Substance: CYTARABINE
     Indication: ANAPLASTIC LARGE-CELL LYMPHOMA
     Dosage: UNK, CYCLE
     Route: 037
     Dates: start: 20131206, end: 20140316
  7. DOXORUBICIN [Suspect]
     Active Substance: DOXORUBICIN
     Indication: ANAPLASTIC LARGE-CELL LYMPHOMA
     Route: 042
     Dates: end: 20140406
  8. CYCLOPHOSPHAMIDE. [Suspect]
     Active Substance: CYCLOPHOSPHAMIDE
     Indication: ANAPLASTIC LARGE-CELL LYMPHOMA
     Dosage: 200 MG/M2, CYCLE
     Route: 042
     Dates: start: 20131206, end: 20140406
  9. DEXAMETHASONE. [Suspect]
     Active Substance: DEXAMETHASONE
     Indication: ANAPLASTIC LARGE-CELL LYMPHOMA
     Dosage: 5 MG/M2, BID
     Route: 048
     Dates: start: 20131206, end: 20140406
  10. CYCLOPHOSPHAMIDE. [Suspect]
     Active Substance: CYCLOPHOSPHAMIDE
     Dosage: 165 MG/M2, BID OVER 30-60 MINUTES ON DAYS 1-5
     Route: 042
     Dates: end: 20140420
  11. CRIZOTINIB [Suspect]
     Active Substance: CRIZOTINIB
     Dosage: 165 MG/M2, BID ON DAYS 1-21
     Dates: end: 20140420
  12. HYDROCORTISONE. [Suspect]
     Active Substance: HYDROCORTISONE
     Indication: ANAPLASTIC LARGE-CELL LYMPHOMA
     Dosage: UNK, CYCLE
     Route: 037
     Dates: start: 20131206, end: 20131206
  13. CYTARABINE. [Suspect]
     Active Substance: CYTARABINE

REACTIONS (17)
  - Electrocardiogram QT prolonged [Recovered/Resolved]
  - Pancytopenia [Unknown]
  - Dehydration [Unknown]
  - Hypokalaemia [Recovered/Resolved]
  - Diarrhoea [Recovering/Resolving]
  - Stomatitis [Recovering/Resolving]
  - Lung infection [Unknown]
  - Cough [Unknown]
  - Febrile neutropenia [Unknown]
  - Chest pain [Unknown]
  - Oropharyngeal pain [Recovering/Resolving]
  - Decreased appetite [Recovered/Resolved]
  - Lip ulceration [Recovering/Resolving]
  - Embolism [Recovered/Resolved]
  - Dyspnoea [Unknown]
  - Hypoalbuminaemia [Unknown]
  - Hypophagia [Recovered/Resolved]

NARRATIVE: CASE EVENT DATE: 20140408
